FAERS Safety Report 6774240-0 (Version None)
Quarter: 2010Q2

REPORT INFORMATION
  Report Type: 
  Country: None (occurrence: None)
  Receive Date: 20100617
  Receipt Date: 20100607
  Transmission Date: 20101027
  Serious: Yes (Other)
  Sender: FDA-Public Use
  Company Number: GB-PFIZER INC-2010071339

PATIENT
  Sex: Male

DRUGS (1)
  1. VIBRAMYCIN [Suspect]
     Indication: RESPIRATORY TRACT INFECTION

REACTIONS (1)
  - BLOOD SODIUM INCREASED [None]
